APPROVED DRUG PRODUCT: RIVAROXABAN
Active Ingredient: RIVAROXABAN
Strength: 2.5MG
Dosage Form/Route: TABLET;ORAL
Application: A208534 | Product #001 | TE Code: AB
Applicant: DR REDDYS LABORATORIES LTD
Approved: May 14, 2025 | RLD: No | RS: No | Type: RX